FAERS Safety Report 10079933 (Version 1)
Quarter: 2014Q2

REPORT INFORMATION
  Report Type: Spontaneous
  Country: SE (occurrence: SE)
  Receive Date: 20140415
  Receipt Date: 20140415
  Transmission Date: 20141212
  Serious: Yes (Disabling, Other)
  Sender: FDA-Public Use
  Company Number: SE-WATSON-2013-25375

PATIENT
  Age: 38 Year
  Sex: Male

DRUGS (6)
  1. CIPROFLOXACIN ARROW [Suspect]
     Indication: URINARY TRACT INFECTION
     Dosage: 1000 MG (2 X 500 MG), DAILY X 4 WEEKS
     Route: 065
     Dates: start: 20120920
  2. CIPROFLOXACIN HEXAL [Suspect]
     Indication: PROSTATITIS
     Dosage: 1000 MG, DAILY (2X500MG) X 4 WEEKS
     Route: 065
     Dates: start: 20121002, end: 20131025
  3. CIPROFLOXACIN SANDOZ /00697202/ [Suspect]
     Indication: URINARY TRACT INFECTION
     Dosage: 1000 MG, DAILY (2 X 500 MG) X 4 WEEKS
     Route: 065
     Dates: start: 20120920
  4. PAROXETINE [Concomitant]
     Indication: DEPRESSION
     Dosage: UNK, UNKNOWN
     Route: 065
     Dates: start: 2004
  5. MIRTAZAPIN [Concomitant]
     Indication: INSOMNIA
     Dosage: UNK, UNKNOWN
     Route: 065
     Dates: start: 2004
  6. DIKLOFENAK                         /00372301/ [Concomitant]
     Indication: PRODUCT USED FOR UNKNOWN INDICATION
     Dosage: UNK, UNKNOWN
     Route: 065

REACTIONS (15)
  - Disturbance in attention [Not Recovered/Not Resolved]
  - Anxiety [Not Recovered/Not Resolved]
  - Back pain [Not Recovered/Not Resolved]
  - Diarrhoea [Not Recovered/Not Resolved]
  - Somnolence [Not Recovered/Not Resolved]
  - Fatigue [Not Recovered/Not Resolved]
  - Insomnia [Not Recovered/Not Resolved]
  - Arthralgia [Not Recovered/Not Resolved]
  - Myalgia [Not Recovered/Not Resolved]
  - Muscular weakness [Not Recovered/Not Resolved]
  - Tinnitus [Not Recovered/Not Resolved]
  - Asthenia [Not Recovered/Not Resolved]
  - Suicidal ideation [Not Recovered/Not Resolved]
  - Depression [Not Recovered/Not Resolved]
  - Coordination abnormal [Not Recovered/Not Resolved]
